FAERS Safety Report 7783282-8 (Version None)
Quarter: 2011Q3

REPORT INFORMATION
  Report Type: 
  Country: None (occurrence: None)
  Receive Date: 20110928
  Receipt Date: 20110919
  Transmission Date: 20111222
  Serious: Yes (Hospitalization)
  Sender: FDA-Public Use
  Company Number: US-JNJFOC-20110908336

PATIENT
  Sex: Male
  Weight: 102.06 kg

DRUGS (4)
  1. DURAGESIC-100 [Suspect]
     Indication: PAIN
     Route: 062
     Dates: start: 20040101, end: 20080101
  2. OTHER THERAPEUTIC MEDICATIONS [Concomitant]
     Indication: LIVER DISORDER
     Route: 065
  3. FENTANYL-100 [Suspect]
     Indication: PAIN
     Route: 062
     Dates: start: 20080101, end: 20110901
  4. DURAGESIC-100 [Suspect]
     Route: 062
     Dates: start: 20080101, end: 20080101

REACTIONS (5)
  - PNEUMONIA [None]
  - PAIN [None]
  - PAIN IN EXTREMITY [None]
  - FLUID RETENTION [None]
  - PRODUCT QUALITY ISSUE [None]
